FAERS Safety Report 7162308-9 (Version None)
Quarter: 2010Q4

REPORT INFORMATION
  Report Type: 
  Country: None (occurrence: None)
  Receive Date: 20101215
  Receipt Date: 20101206
  Transmission Date: 20110411
  Serious: Yes (Other)
  Sender: FDA-Public Use
  Company Number: US-ROCHE-746806

PATIENT
  Sex: Female

DRUGS (3)
  1. BONIVA [Suspect]
     Route: 065
  2. GLUCOSAMINE [Concomitant]
     Dosage: GLUCOSAMINE WITH MSM: 1500 EACH
  3. CALCIUM [Concomitant]

REACTIONS (5)
  - HEADACHE [None]
  - HYPOKINESIA [None]
  - MUSCLE TIGHTNESS [None]
  - NAUSEA [None]
  - SENSORY DISTURBANCE [None]
